FAERS Safety Report 7745784 (Version 4)
Quarter: 2013Q1

REPORT INFORMATION
  Report Type: Spontaneous
  Country: CA (occurrence: CA)
  Receive Date: 20110103
  Receipt Date: 20130319
  Transmission Date: 20140127
  Serious: Yes (Other)
  Sender: FDA-Public Use
  Company Number: PHHY2010CA87070

PATIENT
  Sex: Female

DRUGS (3)
  1. ACLASTA [Suspect]
     Indication: OSTEOPOROSIS
     Dosage: UNK UKN, UNK
     Dates: start: 20100106
  2. ACLASTA [Suspect]
     Dosage: UNK UKN, UNK
     Dates: start: 20110215
  3. ACLASTA [Suspect]
     Dosage: UNK UKN, UNK
     Dates: start: 20120312

REACTIONS (8)
  - Hiatus hernia [Unknown]
  - Oesophageal disorder [Unknown]
  - Fatigue [Unknown]
  - Influenza like illness [Unknown]
  - Muscle spasms [Unknown]
  - Pyrexia [Unknown]
  - Nasopharyngitis [Unknown]
  - Cough [Unknown]
